FAERS Safety Report 22251277 (Version 1)
Quarter: 2023Q2

REPORT INFORMATION
  Report Type: Spontaneous
  Country: US (occurrence: US)
  Receive Date: 20230425
  Receipt Date: 20230425
  Transmission Date: 20230722
  Serious: Yes (Other)
  Sender: FDA-Public Use
  Company Number: US-FreseniusKabi-FK202305238

PATIENT
  Age: 56 Year
  Sex: Male

DRUGS (7)
  1. DOXORUBICIN [Suspect]
     Active Substance: DOXORUBICIN
     Indication: Plasma cell myeloma refractory
     Dosage: 10 MG/M2/DAY OVER 24 HOURS ON DAYS 1-4?SALVAGE THERAPY?RECEIVED 2 CYCLES
     Route: 042
  2. CISPLATIN [Suspect]
     Active Substance: CISPLATIN
     Indication: Plasma cell myeloma refractory
     Dosage: 10 MG/M2/DAY OVER 24 HOURS ON DAYS 1-4?SALVAGE THERAPY?RECEIVED 2 CYCLES
     Route: 042
  3. ETOPOSIDE [Suspect]
     Active Substance: ETOPOSIDE
     Indication: Plasma cell myeloma refractory
     Dosage: 40 MG/M2/DAY OVER 24 HOURS ON DAYS 1-4?SALVAGE THERAPY?RECEIVED 2 CYCLES
     Route: 042
  4. CARFILZOMIB [Suspect]
     Active Substance: CARFILZOMIB
     Indication: Plasma cell myeloma refractory
     Dosage: 20 MG/M2 ON DAY 1 FOLLOWED BY 27 MG/M2 ON DAY 2 OF EACH CYCLE?SALVAGE THERAPY?RECEIVED 2 CYCLES
     Route: 042
  5. LENALIDOMIDE [Suspect]
     Active Substance: LENALIDOMIDE
     Indication: Plasma cell myeloma refractory
     Dosage: 15 MG DAILY ON DAYS 1-21?SALVAGE THERAPY?RECEIVED 2 CYCLES
     Route: 042
  6. DEXAMETHASONE [Suspect]
     Active Substance: DEXAMETHASONE
     Indication: Plasma cell myeloma refractory
     Dosage: DAY 1-4?SALVAGE THERAPY?RECEIVED 2 CYCLES
     Route: 048
  7. CYCLOPHOSPHAMIDE [Suspect]
     Active Substance: CYCLOPHOSPHAMIDE
     Indication: Plasma cell myeloma refractory
     Dosage: 400 MG/M2/DAY OVER 24 HOURS ON DAYS 1-4?SALVAGE THERAPY?RECEIVED 2 CYCLES?RECEIVED 2 CYCLES
     Route: 042

REACTIONS (5)
  - Thrombocytopenia [Unknown]
  - Deep vein thrombosis [Unknown]
  - Neutropenia [Unknown]
  - Mucosal inflammation [Unknown]
  - Anaemia [Unknown]
